FAERS Safety Report 8017187-4 (Version None)
Quarter: 2012Q1

REPORT INFORMATION
  Report Type: 
  Country: None (occurrence: None)
  Receive Date: 20120102
  Receipt Date: 20111219
  Transmission Date: 20120608
  Serious: Yes (Hospitalization)
  Sender: FDA-Public Use
  Company Number: PHHY2011GB104076

PATIENT
  Sex: Female

DRUGS (47)
  1. AMLODIPINE [Suspect]
     Dosage: 10 MG, UNK
     Route: 048
  2. ACETYLSALICYLIC ACID SRT [Suspect]
     Dosage: 325 MG/DAY
     Route: 048
     Dates: start: 20090501
  3. DIGOXIN [Suspect]
     Dosage: 125 UG/DAY
     Route: 048
  4. ESOMEPRAZOLE SODIUM [Suspect]
     Dosage: 80 MG/DAY
     Route: 048
  5. ESOMEPRAZOLE SODIUM [Suspect]
     Dosage: 20 MG, AT BREAKFAST
     Dates: start: 20090501
  6. EZETIMIBE [Suspect]
     Dosage: 10 MG, UNK
     Route: 048
  7. METAXALONE [Suspect]
     Dosage: 400 MG, QID AS NEEDED
     Route: 048
  8. ROSUVASTATIN [Suspect]
     Dosage: 10 MG/DAY
  9. ACETAMINOPHEN [Suspect]
     Indication: PAIN
     Dosage: 650 MG, Q4H (AS NEDDED)
     Dates: start: 20090101
  10. LEVALBUTEROL HCL [Suspect]
     Dosage: 0.63 MG, Q6H
     Dates: start: 20090101
  11. FENTANYL [Suspect]
     Dosage: 50 UG, UNK
     Dates: start: 20090101
  12. SACCHAROMYCES BOULARDII [Suspect]
     Dosage: 250 MG, BID
     Route: 048
     Dates: start: 20090101
  13. SERTRALINE HYDROCHLORIDE [Suspect]
     Dosage: 25 MG/DAY
     Route: 048
  14. SERTRALINE HYDROCHLORIDE [Suspect]
     Dosage: 50 MG/DAY
     Route: 048
  15. CALCIUM WITH VITAMIN D [Suspect]
     Dosage: 1 DF, UNK
     Route: 048
  16. FENTANYL [Suspect]
     Dosage: 75 UG, UNK
  17. SALMETEROL/FLUTICASONE [Suspect]
     Dosage: 1 OT, BID (PUFF)
  18. HALOPERIDOL [Suspect]
     Dosage: 2 MG, AT BED TIME
     Route: 048
  19. POTASSIUM CHLORIDE [Suspect]
     Dosage: 20 DF, BID
     Route: 048
     Dates: start: 20090901
  20. VITAMIN D [Suspect]
     Dosage: 50000 IU (EVERY 7 DAYS)
     Route: 048
     Dates: start: 20090101
  21. PSYLLIUM [Suspect]
     Dosage: 5.85 G, UNK
     Route: 048
     Dates: start: 20090101
  22. OMEPRAZOLE [Concomitant]
     Dates: start: 20090501
  23. FUROSEMIDE [Suspect]
  24. MEMANTINE HYDROCHLORIDE [Suspect]
     Dosage: 5 MG, BID
     Dates: start: 20090101
  25. METOPROLOL TARTRATE [Suspect]
     Dosage: 100 MG, QD
     Dates: start: 20090101
  26. PREDNISONE [Suspect]
     Dosage: 5 MG, EVERY OTHER DAY
     Route: 048
  27. TERIPARATIDE [Suspect]
     Dosage: 20 UG (EVERY OTHER DAY)
     Route: 058
     Dates: start: 20090101
  28. PHENOXYBENZAMINE [Suspect]
     Dosage: 10 MG, UNK
     Dates: start: 20090101
  29. VITAMIN D [Suspect]
     Dosage: 1000 IU/DAY
     Route: 048
     Dates: start: 20090101
  30. SALMETEROL XINAFOATE [Suspect]
     Route: 054
     Dates: start: 20090513
  31. HALOPERIDOL [Suspect]
     Dosage: 1 MG, AT BED TIME
     Route: 048
  32. HYDROCODONE BITARTRATE + ACETAMINOPHEN [Suspect]
     Indication: PAIN
     Dosage: 1 DF, (EVERY 4-6 HOURS AS NEEDED)
     Route: 048
  33. DIPHENOXYLATE HCL + ATROPINE SULFATE [Suspect]
     Indication: DIARRHOEA
     Dosage: 2.5 MG, Q3H
     Route: 048
  34. LORAZEPAM [Suspect]
     Indication: SLEEP DISORDER
     Dosage: 0.5 MG, QD
     Route: 048
  35. METOLAZONE [Suspect]
     Dosage: 0.5 DF, AS NEEDED
     Route: 048
     Dates: start: 20090101
  36. SUCRALFATE [Suspect]
     Dosage: 1 G, QID
     Route: 048
  37. ACETAMINOPHEN [Suspect]
     Indication: PYREXIA
  38. ACETAMINOPHEN [Concomitant]
  39. DIGOXIN [Suspect]
     Dosage: 125 UG (EVERY OTHER DAY)
     Route: 048
  40. HALOPERIDOL [Suspect]
     Dosage: 0.5 MG, AT BED TIME
     Route: 048
  41. POTASSIUM CHLORIDE [Suspect]
     Dosage: 20 MEQ, BID
     Route: 048
     Dates: start: 20090701
  42. METOPROLOL SUCCINATE [Suspect]
     Dosage: 200 MG, QD
     Route: 048
  43. CARISOPRODOL [Suspect]
     Dosage: 1 DF, Q6H
  44. DICYCLOMINE HCL [Suspect]
     Dosage: 10 MG, QID
     Route: 048
     Dates: start: 20090501
  45. LEVOTHYROXINE SODIUM [Suspect]
     Dosage: 50 UG, UNK
     Dates: start: 20090101
  46. MULTIVITAMINE [Suspect]
     Dosage: 1 DF/DAY
     Route: 048
  47. TERIPARATIDE [Suspect]
     Dosage: 20 UG/DAY
     Route: 058
     Dates: start: 20090101

REACTIONS (18)
  - DELIRIUM [None]
  - DISORIENTATION [None]
  - HALLUCINATION, VISUAL [None]
  - HAEMOGLOBIN DECREASED [None]
  - AGITATION [None]
  - MENTAL STATUS CHANGES [None]
  - WEIGHT DECREASED [None]
  - VISUAL IMPAIRMENT [None]
  - CONFUSIONAL STATE [None]
  - PSEUDODEMENTIA [None]
  - DECREASED APPETITE [None]
  - HAEMATOCRIT DECREASED [None]
  - FATIGUE [None]
  - DEHYDRATION [None]
  - MEMORY IMPAIRMENT [None]
  - INSOMNIA [None]
  - PROTEIN TOTAL DECREASED [None]
  - CONSTIPATION [None]
